FAERS Safety Report 4541614-8 (Version None)
Quarter: 2004Q4

REPORT INFORMATION
  Report Type: 
  Country: None (occurrence: None)
  Receive Date: 20041227
  Receipt Date: 20041216
  Transmission Date: 20050328
  Serious: Yes (Hospitalization, Other)
  Sender: FDA-Public Use
  Company Number: 2004-01-0021

PATIENT
  Age: 41 Year
  Sex: Female

DRUGS (8)
  1. DIPROSONE [Suspect]
     Indication: PSORIASIS
     Dosage: 30 G QD TOP-DERM
     Route: 061
     Dates: start: 20020120, end: 20020915
  2. DIPROSALIC      (BETAMETHASONE DIPROPIONATE/SALICYCLIC ACI TOPICALS [Suspect]
     Indication: PSORIASIS
     Dosage: 90 G TOP-DERM
     Route: 061
     Dates: start: 20011101, end: 20011201
  3. APSOR (TACALCITOL) OINTMENT [Suspect]
     Indication: PSORIASIS
     Dosage: 30 G TOP-DERM
     Route: 061
     Dates: start: 20011101, end: 20011201
  4. CYCLOSPORINE [Suspect]
     Indication: PSORIASIS
     Dosage: 4 MG/KG QD
     Dates: start: 20020101
  5. ISOTRETINOIN [Concomitant]
  6. METHOTREXATE [Concomitant]
  7. ETRETINATE [Concomitant]
  8. CORTICOSTEROID [Concomitant]

REACTIONS (10)
  - ADRENAL SUPPRESSION [None]
  - BLOOD CORTICOTROPHIN DECREASED [None]
  - C-REACTIVE PROTEIN INCREASED [None]
  - CUSHING'S SYNDROME [None]
  - DIABETES MELLITUS INSULIN-DEPENDENT [None]
  - DRUG INEFFECTIVE [None]
  - GENERAL PHYSICAL HEALTH DETERIORATION [None]
  - HYPERTENSION [None]
  - LEUKOCYTOSIS [None]
  - PSORIASIS [None]
